FAERS Safety Report 23210805 (Version 2)
Quarter: 2024Q1

REPORT INFORMATION
  Report Type: Spontaneous
  Country: US (occurrence: US)
  Receive Date: 20231121
  Receipt Date: 20240103
  Transmission Date: 20240409
  Serious: Yes (Death, Hospitalization, Other)
  Sender: FDA-Public Use
  Company Number: US-JNJFOC-20231142819

PATIENT
  Age: 66 Year
  Sex: Male

DRUGS (4)
  1. OPSUMIT [Suspect]
     Active Substance: MACITENTAN
     Indication: Product used for unknown indication
     Route: 048
  2. TYVASO [Suspect]
     Active Substance: TREPROSTINIL
     Indication: Pulmonary arterial hypertension
     Dosage: (3 BREATHS), FOUR TIMES A DAY
     Route: 048
     Dates: start: 20231004
  3. TYVASO [Suspect]
     Active Substance: TREPROSTINIL
     Dosage: END DATE /OCT/2023
     Route: 048
     Dates: start: 20231006
  4. TYVASO [Suspect]
     Active Substance: TREPROSTINIL
     Dosage: /OCT/2023
     Route: 048

REACTIONS (9)
  - Completed suicide [Fatal]
  - Depression suicidal [Fatal]
  - Pulmonary arterial hypertension [Fatal]
  - Respiratory failure [Fatal]
  - Pneumonia [Not Recovered/Not Resolved]
  - Cardiac failure congestive [Unknown]
  - Pulmonary oedema [Unknown]
  - Oedema peripheral [Recovering/Resolving]
  - Malaise [Not Recovered/Not Resolved]

NARRATIVE: CASE EVENT DATE: 20231001
